FAERS Safety Report 7640870-7 (Version None)
Quarter: 2011Q3

REPORT INFORMATION
  Report Type: 
  Country: None (occurrence: None)
  Receive Date: 20110728
  Receipt Date: 20110715
  Transmission Date: 20111222
  Serious: Yes (Other)
  Sender: FDA-Public Use
  Company Number: US-JNJFOC-20110707166

PATIENT
  Sex: Male

DRUGS (1)
  1. REMICADE [Suspect]
     Indication: PRODUCT USED FOR UNKNOWN INDICATION
     Route: 042

REACTIONS (8)
  - CHEST PAIN [None]
  - INFUSION RELATED REACTION [None]
  - PALPITATIONS [None]
  - FEELING COLD [None]
  - PAIN [None]
  - PALLOR [None]
  - HEADACHE [None]
  - COLD SWEAT [None]
